FAERS Safety Report 9200827 (Version 1)
Quarter: 2013Q2

REPORT INFORMATION
  Report Type: Spontaneous
  Country: GB (occurrence: GB)
  Receive Date: 20130401
  Receipt Date: 20130401
  Transmission Date: 20140414
  Serious: Yes (Other)
  Sender: FDA-Public Use
  Company Number: GB-ACCORD-017003

PATIENT
  Age: 91 Year
  Sex: Female
  Weight: 62 kg

DRUGS (10)
  1. DONEPEZIL [Suspect]
     Indication: DEMENTIA
     Route: 048
     Dates: start: 20130210
  2. MOVICOL [Concomitant]
  3. CLOPIDOGREL [Concomitant]
  4. PARACETAMOL [Concomitant]
  5. LANSOPRAZOLE [Concomitant]
  6. SIMVASTATIN [Concomitant]
  7. ALENDRONIC ACID [Concomitant]
  8. AMITRIPTYLINE [Concomitant]
  9. ADCAL [Concomitant]
  10. RAMIPRIL [Concomitant]

REACTIONS (8)
  - Fluid intake reduced [Recovered/Resolved]
  - Nausea [Recovered/Resolved]
  - Dizziness [Recovered/Resolved]
  - Decreased appetite [Recovered/Resolved]
  - Fatigue [Recovered/Resolved]
  - Headache [Recovered/Resolved]
  - Weight decreased [Unknown]
  - Dehydration [Unknown]
